FAERS Safety Report 25089219 (Version 1)
Quarter: 2025Q1

REPORT INFORMATION
  Report Type: Spontaneous
  Country: US (occurrence: US)
  Receive Date: 20250318
  Receipt Date: 20250318
  Transmission Date: 20250408
  Serious: Yes (Hospitalization, Other)
  Sender: CSL BEHRING
  Company Number: US-BEH-2025198943

PATIENT
  Age: 48 Year
  Sex: Female

DRUGS (1)
  1. HIZENTRA [Suspect]
     Active Substance: HUMAN IMMUNOGLOBULIN G
     Indication: Hypogammaglobulinaemia
     Dosage: 8 G, QW(STRENGTH: 0.2GM/ML)
     Route: 058
     Dates: start: 202208

REACTIONS (2)
  - Pneumonia [Unknown]
  - Weight decreased [Unknown]
